FAERS Safety Report 7028700-8 (Version None)
Quarter: 2010Q4

REPORT INFORMATION
  Report Type: 
  Country: None (occurrence: None)
  Receive Date: 20101005
  Receipt Date: 20100923
  Transmission Date: 20110411
  Serious: Yes (Other)
  Sender: FDA-Public Use
  Company Number: NL-PFIZER INC-2010077528

PATIENT
  Age: 59 Year
  Sex: Female

DRUGS (4)
  1. TOVIAZ [Suspect]
     Indication: HYPERTONIC BLADDER
     Dosage: 4 MG, 1X/DAY
     Route: 048
     Dates: start: 20100331, end: 20100518
  2. TOVIAZ [Suspect]
     Dosage: 8 MG, 1X/DAY
     Route: 048
     Dates: start: 20100519, end: 20100524
  3. METHOTREXATE [Concomitant]
     Dosage: 15 MG, WEEKLY
     Dates: start: 20040101
  4. FOLIC ACID [Concomitant]
     Dosage: 5 MG, WEEKLY

REACTIONS (3)
  - DRUG INEFFECTIVE [None]
  - EYE SWELLING [None]
  - LIP SWELLING [None]
